FAERS Safety Report 6819615-6 (Version None)
Quarter: 2010Q3

REPORT INFORMATION
  Report Type: 
  Country: None (occurrence: None)
  Receive Date: 20100701
  Receipt Date: 20100224
  Transmission Date: 20110219
  Serious: No
  Sender: FDA-Public Use
  Company Number: US-TEVA-225073USA

PATIENT
  Sex: Female

DRUGS (2)
  1. AZILECT [Suspect]
     Indication: PARKINSON'S DISEASE
     Route: 048
     Dates: start: 20090101, end: 20090101
  2. SINEMET [Concomitant]
     Indication: PARKINSON'S DISEASE
     Route: 048

REACTIONS (4)
  - DRUG INEFFECTIVE [None]
  - FALL [None]
  - MUSCLE SPASMS [None]
  - MUSCULOSKELETAL STIFFNESS [None]
